FAERS Safety Report 20231636 (Version 5)
Quarter: 2022Q2

REPORT INFORMATION
  Report Type: Spontaneous
  Country: CA (occurrence: CA)
  Receive Date: 20211227
  Receipt Date: 20220609
  Transmission Date: 20220721
  Serious: Yes (Other)
  Sender: FDA-Public Use
  Company Number: CA-CELLTRION INC.-2021CA017654

PATIENT

DRUGS (7)
  1. INFLECTRA [Suspect]
     Active Substance: INFLIXIMAB-DYYB
     Indication: Crohn^s disease
     Dosage: 300 MG Q 0, 2, 6 THEN EVERY 8 WEEKS
     Route: 042
     Dates: start: 20211101
  2. INFLECTRA [Suspect]
     Active Substance: INFLIXIMAB-DYYB
     Dosage: 300 MG Q 0, 2, 6 THEN EVERY 8 WEEKS
     Route: 042
     Dates: start: 20211115
  3. INFLECTRA [Suspect]
     Active Substance: INFLIXIMAB-DYYB
     Dosage: 300 MG Q 0, 2, 6 THEN EVERY 8 WEEKS
     Route: 042
     Dates: start: 20211213
  4. INFLECTRA [Suspect]
     Active Substance: INFLIXIMAB-DYYB
     Dosage: 300 MG Q 0, 2, 6 THEN EVERY 8 WEEKS
     Route: 042
     Dates: start: 20220210
  5. INFLECTRA [Suspect]
     Active Substance: INFLIXIMAB-DYYB
     Dosage: 600 MG, EVERY 8 WEEKS
     Route: 042
     Dates: start: 20220404
  6. INFLECTRA [Suspect]
     Active Substance: INFLIXIMAB-DYYB
     Dosage: 600 MG, EVERY 8 WEEKS
     Route: 042
     Dates: start: 20220530
  7. BUDESONIDE [Concomitant]
     Active Substance: BUDESONIDE
     Dosage: UNK

REACTIONS (8)
  - Large intestine perforation [Unknown]
  - Condition aggravated [Not Recovered/Not Resolved]
  - Vomiting [Unknown]
  - Malaise [Unknown]
  - Fistula [Unknown]
  - Pain [Unknown]
  - Pyrexia [Unknown]
  - Off label use [Unknown]

NARRATIVE: CASE EVENT DATE: 20211206
